FAERS Safety Report 18499018 (Version 1)
Quarter: 2020Q4

REPORT INFORMATION
  Report Type: Spontaneous
  Country: NL (occurrence: NL)
  Receive Date: 20201113
  Receipt Date: 20201113
  Transmission Date: 20210114
  Serious: Yes (Hospitalization)
  Sender: FDA-Public Use
  Company Number: NL-TEVA-2020-NL-1168014

PATIENT
  Age: 54 Year
  Sex: Female
  Weight: 84.5 kg

DRUGS (21)
  1. METFORMIN [Suspect]
     Active Substance: METFORMIN HYDROCHLORIDE
     Dosage: 1000 MG, Q12H
     Route: 048
     Dates: start: 20180122, end: 20181205
  2. METFORMIN [Suspect]
     Active Substance: METFORMIN HYDROCHLORIDE
     Dosage: 1000 MG, Q8H
     Route: 048
     Dates: start: 20181206, end: 20190701
  3. METFORMIN [Suspect]
     Active Substance: METFORMIN HYDROCHLORIDE
     Dosage: 500 MG, Q12H
     Route: 048
     Dates: start: 20170407, end: 20180121
  4. EPANOVA [Suspect]
     Active Substance: OMEGA-3-CARBOXYLIC ACIDS
     Dosage: 4 G, QD
     Route: 048
     Dates: start: 20161026, end: 20170216
  5. DAPAGLIFLOZINE [Suspect]
     Active Substance: DAPAGLIFLOZIN
     Indication: DIABETES MELLITUS
     Dosage: 10 MG, QD
     Route: 048
     Dates: start: 20170510, end: 20190701
  6. DAPAGLIFLOZINE [Suspect]
     Active Substance: DAPAGLIFLOZIN
     Route: 048
     Dates: start: 20190820, end: 20190824
  7. HYDROCHLOROTHIAZIDE. [Concomitant]
     Active Substance: HYDROCHLOROTHIAZIDE
     Indication: HYPERTENSION
     Dosage: 13 MG, QD
     Route: 048
     Dates: start: 20160427, end: 20190901
  8. HYDROCHLOROTHIAZIDE. [Concomitant]
     Active Substance: HYDROCHLOROTHIAZIDE
     Dosage: UNIT DOSE : 13 MG
     Route: 048
     Dates: start: 20150715, end: 20160426
  9. FISH OIL [Concomitant]
     Active Substance: FISH OIL
     Dosage: UNIT DOSE : 4 GRAM
     Route: 048
     Dates: start: 20150827, end: 20160630
  10. METFORMIN [Suspect]
     Active Substance: METFORMIN HYDROCHLORIDE
     Dosage: 500 MG, Q12H
     Route: 048
     Dates: start: 20160804, end: 20170406
  11. EPANOVA [Suspect]
     Active Substance: OMEGA-3-CARBOXYLIC ACIDS
     Dosage: UNIT DOSE : 4 GRAM
     Route: 048
     Dates: start: 20190920
  12. EPANOVA [Suspect]
     Active Substance: OMEGA-3-CARBOXYLIC ACIDS
     Dosage: 4 G, QD
     Route: 048
     Dates: start: 20170803, end: 20190823
  13. FISH OIL [Concomitant]
     Active Substance: FISH OIL
     Dosage: UNIT DOSE : 4 GRAM
     Route: 048
     Dates: start: 20180122, end: 20190830
  14. ATORVASTATIN [Concomitant]
     Active Substance: ATORVASTATIN
     Indication: HYPERCHOLESTEROLAEMIA
     Dosage: 40 MG, QD
     Route: 048
     Dates: start: 201312
  15. METFORMIN [Suspect]
     Active Substance: METFORMIN HYDROCHLORIDE
     Indication: DIABETES MELLITUS
     Dosage: 1000 MG, Q12H
     Route: 048
     Dates: start: 2001, end: 20160803
  16. FISH OIL [Concomitant]
     Active Substance: FISH OIL
     Dosage: UNIT DOSE : 4 GRAM
     Route: 048
     Dates: start: 20161026, end: 20170216
  17. FISH OIL [Concomitant]
     Active Substance: FISH OIL
     Dosage: UNIT DOSE : 4 GRAM
     Route: 048
     Dates: start: 20160719, end: 20161024
  18. METFORMIN [Suspect]
     Active Substance: METFORMIN HYDROCHLORIDE
     Dosage: UNIT DOSE : 1000 MG
     Route: 048
     Dates: start: 20190819, end: 20190824
  19. EPANOVA [Suspect]
     Active Substance: OMEGA-3-CARBOXYLIC ACIDS
     Indication: HYPERTRIGLYCERIDAEMIA
     Dosage: 4 G, QD
     Route: 048
     Dates: start: 20160708, end: 20161005
  20. EPANOVA [Suspect]
     Active Substance: OMEGA-3-CARBOXYLIC ACIDS
     Dosage: 4 G, QD
     Route: 048
     Dates: start: 20150827, end: 20160630
  21. FISH OIL [Concomitant]
     Active Substance: FISH OIL
     Dosage: UNIT DOSE : 4 GRAM
     Route: 048
     Dates: start: 20170803, end: 20190824

REACTIONS (1)
  - Diabetic ketoacidosis [Recovered/Resolved]

NARRATIVE: CASE EVENT DATE: 20190824
